FAERS Safety Report 14197232 (Version 1)
Quarter: 2017Q4

REPORT INFORMATION
  Report Type: Spontaneous
  Country: US (occurrence: US)
  Receive Date: 20171116
  Receipt Date: 20171116
  Transmission Date: 20180321
  Serious: No
  Sender: FDA-Public Use
  Company Number: US-RADIUS HEALTH INC.-2017US000039

PATIENT

DRUGS (3)
  1. NOVOLOG [Concomitant]
     Active Substance: INSULIN ASPART
     Indication: TYPE 1 DIABETES MELLITUS
     Dosage: UNK, 3X DAILY
  2. LANTUS [Concomitant]
     Active Substance: INSULIN GLARGINE
     Indication: TYPE 1 DIABETES MELLITUS
     Dosage: UNK: AT BEDTIME
  3. TYMLOS [Suspect]
     Active Substance: ABALOPARATIDE
     Indication: OSTEOPOROSIS POSTMENOPAUSAL
     Dosage: 80 MCG; DAILY
     Route: 058
     Dates: start: 20170815

REACTIONS (3)
  - Headache [Recovering/Resolving]
  - Pain [Recovering/Resolving]
  - Influenza like illness [Recovering/Resolving]

NARRATIVE: CASE EVENT DATE: 20170815
